FAERS Safety Report 7281512-2 (Version None)
Quarter: 2011Q1

REPORT INFORMATION
  Report Type: 
  Country: None (occurrence: None)
  Receive Date: 20110208
  Receipt Date: 20110205
  Transmission Date: 20110831
  Serious: Yes (Other)
  Sender: FDA-Public Use
  Company Number: US-PFIZER INC-2011026359

PATIENT
  Sex: Female

DRUGS (1)
  1. ROBITUSSIN DM [Suspect]
     Dosage: UNK

REACTIONS (2)
  - AGGRESSION [None]
  - HALLUCINATION [None]
